FAERS Safety Report 18384158 (Version 1)
Quarter: 2020Q4

REPORT INFORMATION
  Report Type: Spontaneous
  Country: US (occurrence: US)
  Receive Date: 20201014
  Receipt Date: 20201014
  Transmission Date: 20210114
  Serious: No
  Sender: FDA-Public Use
  Company Number: US-INTRA-CELLULAR THERAPIES, INC.-2020ICT00038

PATIENT
  Age: 43 Year
  Sex: Female

DRUGS (2)
  1. RISPERIDONE. [Suspect]
     Active Substance: RISPERIDONE
  2. CAPLYTA [Suspect]
     Active Substance: LUMATEPERONE
     Dosage: UNK, 1X/DAY
     Route: 048

REACTIONS (5)
  - Anxiety [Unknown]
  - Paraesthesia [Unknown]
  - Chest pain [Unknown]
  - Product substitution issue [Unknown]
  - Hypoaesthesia [Unknown]
